FAERS Safety Report 5622261-3 (Version None)
Quarter: 2008Q1

REPORT INFORMATION
  Report Type: 
  Country: None (occurrence: None)
  Receive Date: 20080211
  Receipt Date: 20080131
  Transmission Date: 20080703
  Serious: Yes (Other)
  Sender: FDA-Public Use
  Company Number: BR-ROCHE-545069

PATIENT
  Age: 28 Year
  Sex: Female
  Weight: 49 kg

DRUGS (4)
  1. ROACUTAN [Suspect]
     Indication: ACNE
     Dosage: STRENGTH: 20 MG
     Route: 048
     Dates: start: 20070801
  2. ROACUTAN [Suspect]
     Dosage: STRENGTH: 10 MG
     Route: 048
     Dates: end: 20080101
  3. ROACUTAN [Suspect]
     Dosage: STRENGTH: 20 MG
     Route: 048
     Dates: start: 20080101, end: 20080121
  4. 1 CONCOMITANT DRUG [Concomitant]
     Indication: CONTRACEPTION

REACTIONS (3)
  - DRY SKIN [None]
  - EYELID OEDEMA [None]
  - FACE OEDEMA [None]
